FAERS Safety Report 4860608-6 (Version None)
Quarter: 2005Q4

REPORT INFORMATION
  Report Type: 
  Country: None (occurrence: None)
  Receive Date: 20051219
  Receipt Date: 20050217
  Transmission Date: 20060501
  Serious: Yes (Hospitalization, Other)
  Sender: FDA-Public Use
  Company Number: US-MERCK-0502USA02324

PATIENT
  Age: 73 Year
  Sex: Male
  Weight: 84 kg

DRUGS (1)
  1. VIOXX [Suspect]
     Indication: SPINAL OSTEOARTHRITIS
     Route: 048
     Dates: start: 20020321, end: 20030324

REACTIONS (14)
  - ADVERSE EVENT [None]
  - ARTERIAL INJURY [None]
  - ATRIAL FIBRILLATION [None]
  - ATRIAL SEPTAL DEFECT [None]
  - BRADYCARDIA [None]
  - CARDIAC DISORDER [None]
  - CARDIAC FLUTTER [None]
  - CEREBRAL INFARCTION [None]
  - CEREBROVASCULAR ACCIDENT [None]
  - GASTRITIS [None]
  - NERVOUSNESS [None]
  - RENAL FAILURE [None]
  - ULCER [None]
  - WEIGHT DECREASED [None]
